FAERS Safety Report 15500240 (Version 1)
Quarter: 2018Q4

REPORT INFORMATION
  Report Type: Spontaneous
  Country: US (occurrence: US)
  Receive Date: 20181015
  Receipt Date: 20181015
  Transmission Date: 20190205
  Serious: Yes (Other)
  Sender: FDA-Public Use
  Company Number: US-AVADEL LEGACY PHARMACEUTICALS, LLC-2018AVA00178

PATIENT
  Age: 85 Year
  Sex: Male
  Weight: 81.63 kg

DRUGS (4)
  1. VITAMIN B12 [Concomitant]
     Active Substance: CYANOCOBALAMIN
  2. METOPROLOL TARTRATE. [Concomitant]
     Active Substance: METOPROLOL TARTRATE
     Dosage: 10 MG, 2X/DAY
     Dates: start: 1998
  3. LOVASTATIN. [Concomitant]
     Active Substance: LOVASTATIN
     Dosage: 20 MG, 1X/DAY
  4. NOCTIVA [Suspect]
     Active Substance: DESMOPRESSIN ACETATE
     Indication: NOCTURIA
     Dosage: 1X/DAY IN EITHER NOSTRIL APPROXIMATELY 30 MINUTES BEFORE BED
     Route: 045
     Dates: start: 20180526, end: 201806

REACTIONS (5)
  - Confusional state [Recovered/Resolved]
  - Hallucination [Recovered/Resolved]
  - Drug effect incomplete [Recovered/Resolved]
  - Sneezing [Recovered/Resolved]
  - Disorientation [Recovered/Resolved]

NARRATIVE: CASE EVENT DATE: 20180526
